FAERS Safety Report 24679399 (Version 2)
Quarter: 2024Q4

REPORT INFORMATION
  Report Type: Spontaneous
  Country: US (occurrence: US)
  Receive Date: 20241129
  Receipt Date: 20241203
  Transmission Date: 20250115
  Serious: Yes (Hospitalization, Other)
  Sender: ACCORD
  Company Number: US-Accord-457277

PATIENT
  Age: 49 Year
  Sex: Female

DRUGS (8)
  1. CARBOPLATIN [Suspect]
     Active Substance: CARBOPLATIN
     Indication: Hodgkin^s disease
     Dosage: FOR 3 CYCLES
     Dates: start: 2018, end: 201812
  2. ETOPOSIDE [Suspect]
     Active Substance: ETOPOSIDE
     Indication: Hodgkin^s disease
     Dosage: FOR 3 CYCLES
     Dates: start: 2018, end: 201812
  3. IFOSFAMIDE [Suspect]
     Active Substance: IFOSFAMIDE
     Indication: Hodgkin^s disease
     Dosage: FOR 3 CYCLES
     Dates: start: 2018, end: 201812
  4. BRENTUXIMAB VEDOTIN [Suspect]
     Active Substance: BRENTUXIMAB VEDOTIN
     Indication: Hodgkin^s disease
     Dosage: 2 DOSES
     Dates: start: 2019, end: 2019
  5. CARBOPLATIN [Suspect]
     Active Substance: CARBOPLATIN
     Indication: Metastases to lymph nodes
     Dosage: FOR 3 CYCLES
     Dates: start: 2018, end: 201812
  6. ETOPOSIDE [Suspect]
     Active Substance: ETOPOSIDE
     Indication: Metastases to lymph nodes
     Dosage: FOR 3 CYCLES
     Dates: start: 2018, end: 201812
  7. IFOSFAMIDE [Suspect]
     Active Substance: IFOSFAMIDE
     Indication: Metastases to lymph nodes
     Dosage: FOR 3 CYCLES
     Dates: start: 2018, end: 201812
  8. BRENTUXIMAB VEDOTIN [Suspect]
     Active Substance: BRENTUXIMAB VEDOTIN
     Indication: Metastases to lymph nodes
     Dosage: 2 DOSES
     Dates: start: 2019, end: 2019

REACTIONS (9)
  - Myelosuppression [Unknown]
  - Pancytopenia [Unknown]
  - Nausea [Unknown]
  - Vomiting [Unknown]
  - Acute kidney injury [Recovering/Resolving]
  - Off label use [Unknown]
  - Tubulointerstitial nephritis [Recovering/Resolving]
  - Renal tubular injury [Recovering/Resolving]
  - Renal arteriosclerosis [Recovering/Resolving]

NARRATIVE: CASE EVENT DATE: 20180101
